FAERS Safety Report 10412410 (Version 4)
Quarter: 2015Q2

REPORT INFORMATION
  Report Type: Other
  Country: US (occurrence: US)
  Receive Date: 20140827
  Receipt Date: 20150622
  Transmission Date: 20150821
  Serious: No
  Sender: FDA-Public Use
  Company Number: US-ACORDA-ACO_105555_2014

PATIENT
  Sex: Female
  Weight: 58.5 kg

DRUGS (1)
  1. AMPYRA [Suspect]
     Active Substance: DALFAMPRIDINE
     Indication: GAIT DISTURBANCE
     Dosage: 10 MG/TWICE DAILY
     Route: 048

REACTIONS (7)
  - Dysgraphia [Not Recovered/Not Resolved]
  - Hemiparesis [Not Recovered/Not Resolved]
  - Therapy cessation [Not Recovered/Not Resolved]
  - Abasia [Unknown]
  - Walking aid user [Not Recovered/Not Resolved]
  - Muscular weakness [Not Recovered/Not Resolved]
  - Gait disturbance [Not Recovered/Not Resolved]
